FAERS Safety Report 11637186 (Version 1)
Quarter: 2015Q4

REPORT INFORMATION
  Report Type: Report from Study
  Country: AU (occurrence: AU)
  Receive Date: 20151016
  Receipt Date: 20151016
  Transmission Date: 20160304
  Serious: Yes (Other)
  Sender: FDA-Public Use
  Company Number: AU-JNJFOC-20151006770

PATIENT
  Age: 24 Year
  Sex: Female
  Weight: 175 kg

DRUGS (2)
  1. DOXORUBICIN HYDROCHLORIDE (CAELYX) [Suspect]
     Active Substance: DOXORUBICIN HYDROCHLORIDE
     Indication: DESMOID TUMOUR
     Route: 042
  2. DOXORUBICIN HYDROCHLORIDE (CAELYX) [Suspect]
     Active Substance: DOXORUBICIN HYDROCHLORIDE
     Indication: DESMOID TUMOUR
     Dosage: 30 VIALS, 5 REPEATS
     Route: 042
     Dates: end: 20151008

REACTIONS (10)
  - Chest pain [Unknown]
  - Bronchospasm [Recovered/Resolved]
  - Back pain [Recovered/Resolved with Sequelae]
  - Paraesthesia [Unknown]
  - Off label use [Unknown]
  - Tachycardia [Recovered/Resolved with Sequelae]
  - Dyspnoea [Unknown]
  - Hypersensitivity [Recovered/Resolved]
  - Headache [Recovered/Resolved]
  - Product use issue [Unknown]

NARRATIVE: CASE EVENT DATE: 20151007
